FAERS Safety Report 24337956 (Version 1)
Quarter: 2024Q3

REPORT INFORMATION
  Report Type: Spontaneous
  Country: ES (occurrence: ES)
  Receive Date: 20240919
  Receipt Date: 20240919
  Transmission Date: 20241016
  Serious: Yes (Other)
  Sender: AUROBINDO
  Company Number: ES-AEMPS-1567420

PATIENT
  Sex: Male

DRUGS (3)
  1. BISOPROLOL [Interacting]
     Active Substance: BISOPROLOL\BISOPROLOL FUMARATE
     Indication: Pneumonia
     Dosage: UNK
     Route: 048
     Dates: start: 20240705
  2. LOSARTAN [Interacting]
     Active Substance: LOSARTAN\LOSARTAN POTASSIUM
     Indication: Pneumonia
     Dosage: UNK
     Route: 048
     Dates: start: 20240705
  3. ISOSORBIDE MONONITRATE [Interacting]
     Active Substance: ISOSORBIDE MONONITRATE
     Indication: Pneumonia
     Dosage: UNK
     Route: 048
     Dates: start: 20240705

REACTIONS (2)
  - Hypotension [Recovering/Resolving]
  - Product administration error [Recovering/Resolving]

NARRATIVE: CASE EVENT DATE: 20240705
